FAERS Safety Report 24286200 (Version 2)
Quarter: 2024Q3

REPORT INFORMATION
  Report Type: Report from Study
  Country: ZA (occurrence: ZA)
  Receive Date: 20240905
  Receipt Date: 20240918
  Transmission Date: 20241016
  Serious: Yes (Death)
  Sender: PFIZER
  Company Number: ZA-PFIZER INC-PV202300120337

PATIENT
  Age: 51 Year
  Sex: Female
  Weight: 55 kg

DRUGS (2)
  1. LORLATINIB [Suspect]
     Active Substance: LORLATINIB
     Indication: Non-small cell lung cancer
     Dosage: 50 MG, DAILY
     Route: 048
     Dates: start: 20230216, end: 20240508
  2. CRIZOTINIB [Concomitant]
     Active Substance: CRIZOTINIB
     Indication: Non-small cell lung cancer
     Dosage: 250 MG, DAILY

REACTIONS (1)
  - Death [Fatal]

NARRATIVE: CASE EVENT DATE: 20240501
